FAERS Safety Report 5749911-5 (Version None)
Quarter: 2008Q2

REPORT INFORMATION
  Report Type: 
  Country: None (occurrence: None)
  Receive Date: 20080520
  Receipt Date: 20080520
  Transmission Date: 20081010
  Serious: Yes (Hospitalization)
  Sender: FDA-Public Use
  Company Number: None

PATIENT
  Sex: Male
  Weight: 60.7 kg

DRUGS (2)
  1. TAXOL [Suspect]
     Dosage: 45 MG
  2. DECADRON [Concomitant]

REACTIONS (1)
  - BLOOD GLUCOSE ABNORMAL [None]
